FAERS Safety Report 14308684 (Version 1)
Quarter: 2017Q4

REPORT INFORMATION
  Report Type: Spontaneous
  Country: US (occurrence: US)
  Receive Date: 20171220
  Receipt Date: 20171220
  Transmission Date: 20180321
  Serious: Yes (Other)
  Sender: FDA-Public Use
  Company Number: US-BAYER-2017-241766

PATIENT
  Age: 78 Year
  Sex: Female

DRUGS (2)
  1. CLOPIDOGREL [Interacting]
     Active Substance: CLOPIDOGREL BISULFATE
  2. ACETYLSALICYLIC ACID (} 100 MG) [Suspect]
     Active Substance: ASPIRIN
     Indication: HEADACHE

REACTIONS (5)
  - Labelled drug-drug interaction medication error [None]
  - Haemoglobin decreased [None]
  - Upper gastrointestinal haemorrhage [None]
  - Melaena [None]
  - Drug administration error [None]
